FAERS Safety Report 6257755-3 (Version None)
Quarter: 2009Q3

REPORT INFORMATION
  Report Type: 
  Country: None (occurrence: None)
  Receive Date: 20090706
  Receipt Date: 20090619
  Transmission Date: 20100115
  Serious: Yes (Hospitalization)
  Sender: FDA-Public Use
  Company Number: PHHY2009BR24791

PATIENT
  Sex: Male
  Weight: 55 kg

DRUGS (1)
  1. FORASEQ [Suspect]
     Indication: LUNG DISORDER
     Dosage: ONCE A DAY

REACTIONS (5)
  - CEREBROVASCULAR ACCIDENT [None]
  - FALL [None]
  - HYPERTENSION [None]
  - MALAISE [None]
  - MOVEMENT DISORDER [None]
